FAERS Safety Report 5385791-8 (Version None)
Quarter: 2007Q3

REPORT INFORMATION
  Report Type: 
  Country: None (occurrence: None)
  Receive Date: 20070712
  Receipt Date: 20070630
  Transmission Date: 20080115
  Serious: Yes (Other)
  Sender: FDA-Public Use
  Company Number: US-PFIZER INC-2007055795

PATIENT
  Sex: Female
  Weight: 53.5 kg

DRUGS (4)
  1. CHANTIX [Suspect]
     Indication: EX-SMOKER
     Dates: start: 20070601, end: 20070630
  2. METHADONE HCL [Concomitant]
     Indication: TRIGEMINAL NEURALGIA
  3. NORCO [Concomitant]
     Indication: TRIGEMINAL NEURALGIA
  4. PREMARIN [Concomitant]
     Indication: HORMONE REPLACEMENT THERAPY

REACTIONS (1)
  - TRIGEMINAL NEURALGIA [None]
